FAERS Safety Report 17440344 (Version 1)
Quarter: 2020Q1

REPORT INFORMATION
  Report Type: Spontaneous
  Country: US (occurrence: US)
  Receive Date: 20200205
  Receipt Date: 20200205
  Transmission Date: 20200409
  Serious: Yes (Other)
  Sender: FDA-Public Use
  Company Number: None

PATIENT
  Age: 72 Year
  Sex: Male
  Weight: 85.28 kg

DRUGS (1)
  1. ABIRATERONE 250MG TABLET [Suspect]
     Active Substance: ABIRATERONE
     Indication: PROSTATE CANCER
     Dosage: 4X250MG ONCE DAILY ORAL
     Route: 048
     Dates: start: 20200202

REACTIONS (6)
  - Product substitution issue [None]
  - Vomiting [None]
  - Back pain [None]
  - Nausea [None]
  - Diarrhoea [None]
  - Chest pain [None]

NARRATIVE: CASE EVENT DATE: 20200202
